FAERS Safety Report 8999837 (Version 2)
Quarter: 2013Q1

REPORT INFORMATION
  Report Type: Report from Study
  Country: US (occurrence: US)
  Receive Date: 20130102
  Receipt Date: 20130124
  Transmission Date: 20140127
  Serious: No
  Sender: FDA-Public Use
  Company Number: US-JNJFOC-20121212464

PATIENT
  Sex: Female
  Weight: 61.24 kg

DRUGS (10)
  1. REMICADE [Suspect]
     Indication: CROHN^S DISEASE
     Dosage: 3 VIALS
     Route: 042
  2. REMICADE [Suspect]
     Indication: CROHN^S DISEASE
     Route: 042
     Dates: start: 201202
  3. LIALDA [Concomitant]
     Indication: CROHN^S DISEASE
     Route: 065
     Dates: start: 201112
  4. PREDNISONE [Concomitant]
     Indication: ARTHRITIS
     Route: 065
     Dates: start: 200301
  5. PREDNISONE [Concomitant]
     Indication: SYSTEMIC LUPUS ERYTHEMATOSUS
     Route: 065
     Dates: start: 200301
  6. PLAQUENIL [Concomitant]
     Indication: ARTHRITIS
     Route: 065
     Dates: start: 200301
  7. PLAQUENIL [Concomitant]
     Indication: SYSTEMIC LUPUS ERYTHEMATOSUS
     Route: 065
     Dates: start: 200301
  8. SINGULAIR [Concomitant]
     Indication: MULTIPLE ALLERGIES
     Dates: start: 199601
  9. LYRICA [Concomitant]
     Indication: ARTHRITIS
     Route: 065
     Dates: start: 199601
  10. LYRICA [Concomitant]
     Indication: SYSTEMIC LUPUS ERYTHEMATOSUS
     Route: 065
     Dates: start: 199601

REACTIONS (3)
  - Headache [Recovering/Resolving]
  - Drug ineffective [Unknown]
  - Alopecia [Recovering/Resolving]
